FAERS Safety Report 5224329-2 (Version None)
Quarter: 2007Q1

REPORT INFORMATION
  Report Type: 
  Country: None (occurrence: None)
  Receive Date: 20070130
  Receipt Date: 20070129
  Transmission Date: 20070707
  Serious: Yes (Other)
  Sender: FDA-Public Use
  Company Number: US-BOEHRINGER INGELHEIM PHARMACEUTICALS, INC.-2006-BP-12280PF

PATIENT
  Sex: Male
  Weight: 90.72 kg

DRUGS (4)
  1. SPIRIVA [Suspect]
     Indication: EMPHYSEMA
     Route: 055
  2. ARICEPT [Suspect]
     Indication: DEMENTIA ALZHEIMER'S TYPE
     Route: 048
     Dates: start: 20050101, end: 20050101
  3. VIAGRA [Suspect]
     Indication: EPIDIDYMITIS
     Route: 048
  4. COMBIVENT [Concomitant]

REACTIONS (11)
  - ABNORMAL BEHAVIOUR [None]
  - AGITATION [None]
  - AMNESIA [None]
  - DEMENTIA ALZHEIMER'S TYPE [None]
  - DISORIENTATION [None]
  - MEMORY IMPAIRMENT [None]
  - MENTAL IMPAIRMENT [None]
  - MUSCLE SPASMS [None]
  - MYALGIA [None]
  - PARANOIA [None]
  - SUICIDAL IDEATION [None]
